FAERS Safety Report 9028922 (Version 3)
Quarter: 2014Q1

REPORT INFORMATION
  Report Type: Report from Study
  Country: US (occurrence: US)
  Receive Date: 20130124
  Receipt Date: 20140128
  Transmission Date: 20141002
  Serious: Yes (Hospitalization, Other)
  Sender: FDA-Public Use
  Company Number: PHEH2013US001871

PATIENT
  Sex: Female

DRUGS (1)
  1. AFINITOR [Suspect]
     Indication: BREAST CANCER
     Dosage: 10 MG, QD
     Route: 048

REACTIONS (3)
  - Back injury [Unknown]
  - Back pain [Unknown]
  - Malignant neoplasm progression [Unknown]
